FAERS Safety Report 5931994-0 (Version None)
Quarter: 2008Q4

REPORT INFORMATION
  Report Type: 
  Country: None (occurrence: None)
  Receive Date: 20081027
  Receipt Date: 20081017
  Transmission Date: 20090506
  Serious: Yes (Other)
  Sender: FDA-Public Use
  Company Number: JP-PFIZER INC-2008088465

PATIENT

DRUGS (1)
  1. NORVASC [Suspect]

REACTIONS (2)
  - SKIN ULCER [None]
  - STASIS DERMATITIS [None]
